FAERS Safety Report 8005169-8 (Version None)
Quarter: 2011Q4

REPORT INFORMATION
  Report Type: 
  Country: None (occurrence: None)
  Receive Date: 20111223
  Receipt Date: 20111216
  Transmission Date: 20120403
  Serious: Yes (Other)
  Sender: FDA-Public Use
  Company Number: PHHY2011BR110068

PATIENT
  Age: 13 Year
  Sex: Female

DRUGS (2)
  1. EXJADE [Suspect]
     Indication: SICKLE CELL ANAEMIA
     Dosage: 1000 MG, DAILY
     Route: 048
     Dates: start: 20110201
  2. FOLIC ACID [Concomitant]
     Dosage: UNK UKN, UNK

REACTIONS (2)
  - LACRIMAL DISORDER [None]
  - EYE IRRITATION [None]
